FAERS Safety Report 7107363-7 (Version None)
Quarter: 2010Q4

REPORT INFORMATION
  Report Type: 
  Country: None (occurrence: None)
  Receive Date: 20101112
  Receipt Date: 20101112
  Transmission Date: 20110411
  Serious: Yes (Hospitalization)
  Sender: FDA-Public Use
  Company Number: None

PATIENT
  Sex: Male
  Weight: 102.0593 kg

DRUGS (13)
  1. PEMETREXED [Suspect]
     Indication: LUNG NEOPLASM MALIGNANT
     Dosage: 1055 MG Q 21 D IV DRIP   5 CYCLES
     Route: 041
     Dates: start: 20100707, end: 20101004
  2. CISPLATIN [Suspect]
     Indication: LUNG NEOPLASM MALIGNANT
     Dosage: 158 MG Q 21 D IV DRIP  5 CYCLES
     Route: 041
     Dates: start: 20100707, end: 20101004
  3. ACCU-CHECK AVIVA - GLUCOSE- EST STRIP [Concomitant]
  4. ALBUTEROL [Concomitant]
  5. ALBUTEROL SO4 [Concomitant]
  6. ALCOHOL PREP [Concomitant]
  7. APREPITANT [Concomitant]
  8. CIPROFLOXACIN HCL [Concomitant]
  9. DIAZEPAM [Concomitant]
  10. DOCUSATE NA 50MG/SENNOSIDES [Concomitant]
  11. FOLIC ACID [Concomitant]
  12. FORMOTEROL FUMARATE [Concomitant]
  13. ACETAMINOPHEN AND HYDROCODONE BITARTRATE [Concomitant]

REACTIONS (9)
  - ABDOMINAL PAIN [None]
  - ASTHENIA [None]
  - BODY TEMPERATURE INCREASED [None]
  - CHILLS [None]
  - CONSTIPATION [None]
  - FATIGUE [None]
  - MALAISE [None]
  - NEUTROPENIC SEPSIS [None]
  - URINARY HESITATION [None]
